FAERS Safety Report 9924337 (Version 1)
Quarter: 2014Q1

REPORT INFORMATION
  Report Type: Spontaneous
  Country: US (occurrence: US)
  Receive Date: 20140226
  Receipt Date: 20140226
  Transmission Date: 20141002
  Serious: Yes (Hospitalization)
  Sender: FDA-Public Use
  Company Number: US-ROCHE-1354406

PATIENT
  Sex: Female

DRUGS (3)
  1. XOLAIR [Suspect]
     Indication: ASTHMA
     Route: 065
  2. XOLAIR [Suspect]
     Route: 065
     Dates: start: 20131223
  3. WELLBUTRIN [Concomitant]

REACTIONS (2)
  - Asthma [Unknown]
  - Blood immunoglobulin E increased [Unknown]
